FAERS Safety Report 8468829-0 (Version None)
Quarter: 2012Q2

REPORT INFORMATION
  Report Type: 
  Country: None (occurrence: None)
  Receive Date: 20120626
  Receipt Date: 20111229
  Transmission Date: 20120825
  Serious: Yes (Other)
  Sender: FDA-Public Use
  Company Number: CL-ROCHE-1026514

PATIENT
  Sex: Female
  Weight: 63 kg

DRUGS (1)
  1. XELODA [Suspect]
     Indication: RECTAL CANCER
     Dosage: 1500 MG IN MORNING AND 300 MG AT NIGHT EVERY 14 DAYS
     Route: 048
     Dates: start: 20110825, end: 20111017

REACTIONS (2)
  - TIBIA FRACTURE [None]
  - FIBULA FRACTURE [None]
